FAERS Safety Report 10640196 (Version 1)
Quarter: 2014Q4

REPORT INFORMATION
  Report Type: Spontaneous
  Country: US (occurrence: None)
  Receive Date: 20141208
  Receipt Date: 20141208
  Transmission Date: 20150529
  Serious: Yes (Other)
  Sender: FDA-Public Use
  Company Number: None

PATIENT
  Age: 64 Year
  Sex: Female
  Weight: 65.77 kg

DRUGS (1)
  1. NEUTROGENA ULTRA SHEER DRY TOUCH SUNBLOCK SPF 45 WITH HELIOPLEX [Suspect]
     Active Substance: AVOBENZONE\HOMOSALATE\OCTISALATE\OCTOCRYLENE\OXYBENZONE
     Indication: PROPHYLAXIS AGAINST SOLAR RADIATION

REACTIONS (3)
  - Application site dryness [None]
  - Application site pruritus [None]
  - Application site exfoliation [None]

NARRATIVE: CASE EVENT DATE: 20140107
